FAERS Safety Report 24438422 (Version 3)
Quarter: 2025Q3

REPORT INFORMATION
  Report Type: Spontaneous
  Country: PR (occurrence: PR)
  Receive Date: 20241015
  Receipt Date: 20250707
  Transmission Date: 20251021
  Serious: Yes (Death, Hospitalization)
  Sender: PFIZER
  Company Number: PR-PFIZER INC-202400275397

PATIENT
  Age: 82 Year
  Sex: Female

DRUGS (7)
  1. IBRANCE [Suspect]
     Active Substance: PALBOCICLIB
     Route: 048
     Dates: start: 20230603, end: 20250610
  2. EXEMESTANE [Concomitant]
     Active Substance: EXEMESTANE
  3. ATENOLOL [Concomitant]
     Active Substance: ATENOLOL
  4. LOSARTAN [Concomitant]
     Active Substance: LOSARTAN
  5. MINERALS\VITAMINS [Concomitant]
     Active Substance: MINERALS\VITAMINS
  6. MAGNESIUM [Concomitant]
     Active Substance: MAGNESIUM
  7. MELATONIN [Concomitant]
     Active Substance: MELATONIN
     Route: 060

REACTIONS (5)
  - Metastasis [Fatal]
  - Depressed mood [Unknown]
  - Memory impairment [Recovered/Resolved]
  - Product dose omission in error [Recovered/Resolved]
  - Product use issue [Recovered/Resolved]

NARRATIVE: CASE EVENT DATE: 20240101
